FAERS Safety Report 8021761-9 (Version None)
Quarter: 2012Q1

REPORT INFORMATION
  Report Type: 
  Country: None (occurrence: None)
  Receive Date: 20120104
  Receipt Date: 20111231
  Transmission Date: 20120608
  Serious: Yes (Death, Other)
  Sender: FDA-Public Use
  Company Number: PHHY2011US113847

PATIENT

DRUGS (9)
  1. VALGANCICLOVIR [Concomitant]
     Indication: ANTIVIRAL PROPHYLAXIS
     Dosage: 14 MG/KG, BID FOR THREE MONTHS
  2. TAZOBACTAM [Concomitant]
  3. FLUCONAZOLE [Concomitant]
  4. PIPERACILLIN [Concomitant]
  5. BASILIXIMAB [Suspect]
     Indication: LIVER AND SMALL INTESTINE TRANSPLANT
  6. STEROIDS NOS [Concomitant]
     Indication: LIVER AND SMALL INTESTINE TRANSPLANT
  7. TACROLIMUS [Concomitant]
     Indication: LIVER AND SMALL INTESTINE TRANSPLANT
  8. GANCICLOVIR [Concomitant]
     Indication: ANTIVIRAL PROPHYLAXIS
     Dosage: FOR TWO WEEK
     Route: 042
  9. VALGANCICLOVIR [Concomitant]
     Dosage: 14 MG/KG, FOR NINE MONTHS

REACTIONS (3)
  - CYTOMEGALOVIRUS INFECTION [None]
  - DEATH [None]
  - LUNG INFECTION [None]
